FAERS Safety Report 19232314 (Version 1)
Quarter: 2021Q2

REPORT INFORMATION
  Report Type: Spontaneous
  Country: EG (occurrence: EG)
  Receive Date: 20210507
  Receipt Date: 20210507
  Transmission Date: 20210717
  Serious: Yes (Hospitalization, Other)
  Sender: FDA-Public Use
  Company Number: EG-HIKMA PHARMACEUTICALS USA INC.-EG-H14001-21-02100

PATIENT
  Age: 66 Year
  Sex: Female

DRUGS (3)
  1. ONDALENZ [Concomitant]
     Indication: PRODUCT USED FOR UNKNOWN INDICATION
     Dosage: UNKNOWN
     Route: 065
  2. GEMZAR [Suspect]
     Active Substance: GEMCITABINE HYDROCHLORIDE
     Indication: UTERINE CANCER
     Route: 041
     Dates: start: 202102
  3. CARBOTINOL [Suspect]
     Active Substance: CARBOPLATIN
     Indication: UTERINE CANCER
     Dosage: UNKNOWN
     Route: 041
     Dates: start: 202102

REACTIONS (7)
  - Normochromic normocytic anaemia [Unknown]
  - Creatinine renal clearance decreased [Unknown]
  - Pain in extremity [Unknown]
  - Aspartate aminotransferase decreased [Unknown]
  - Constipation [Unknown]
  - Peripheral swelling [Unknown]
  - Immunodeficiency [Unknown]

NARRATIVE: CASE EVENT DATE: 202102
